FAERS Safety Report 4603821-5 (Version None)
Quarter: 2005Q1

REPORT INFORMATION
  Report Type: 
  Country: None (occurrence: None)
  Receive Date: 20050308
  Receipt Date: 20050222
  Transmission Date: 20050727
  Serious: Yes (Other)
  Sender: FDA-Public Use
  Company Number: CIP05000211

PATIENT
  Age: 68 Year
  Sex: Female

DRUGS (5)
  1. ACTONEL [Suspect]
     Indication: OSTEOPOROSIS
     Dosage: 35 MG ONCE WEEKLY, ORAL
     Route: 048
     Dates: start: 20030101
  2. ACTONEL [Suspect]
     Dosage: 5 MG DAILY, ORAL
     Route: 048
  3. SINGULAIR (MONTELUKAST) [Concomitant]
  4. ALBUTEROL [Concomitant]
  5. ATROVENT [Concomitant]

REACTIONS (4)
  - BLOOD DISORDER [None]
  - RASH [None]
  - SKIN LESION [None]
  - T-CELL LYMPHOMA [None]
